FAERS Safety Report 9625700 (Version 2)
Quarter: 2013Q4

REPORT INFORMATION
  Report Type: Spontaneous
  Country: GB (occurrence: GB)
  Receive Date: 20131016
  Receipt Date: 20131028
  Transmission Date: 20140711
  Serious: Yes (Other)
  Sender: FDA-Public Use
  Company Number: GB-JNJFOC-20131006439

PATIENT
  Age: 44 Year
  Sex: Female

DRUGS (3)
  1. STELARA [Suspect]
     Indication: PSORIASIS
     Route: 030
     Dates: start: 20130222
  2. STELARA [Suspect]
     Indication: PSORIASIS
     Route: 030
     Dates: start: 20121005
  3. REBIF [Concomitant]
     Indication: PRODUCT USED FOR UNKNOWN INDICATION
     Route: 058

REACTIONS (3)
  - Acne [Not Recovered/Not Resolved]
  - Dermatitis acneiform [Unknown]
  - Incorrect route of drug administration [Unknown]
